FAERS Safety Report 7262413-2 (Version None)
Quarter: 2011Q1

REPORT INFORMATION
  Report Type: 
  Country: None (occurrence: None)
  Receive Date: 20110130
  Receipt Date: 20101116
  Transmission Date: 20110831
  Serious: No
  Sender: FDA-Public Use
  Company Number: US-ABBOTT-10P-163-0686153-00

PATIENT
  Sex: Female
  Weight: 81.266 kg

DRUGS (18)
  1. VYTORIN [Suspect]
     Indication: BLOOD CHOLESTEROL INCREASED
     Dates: end: 20101001
  2. ALLEGRA [Concomitant]
     Indication: HYPERSENSITIVITY
  3. AMBIEN CR [Concomitant]
     Indication: INSOMNIA
  4. VITAMIN B6 [Concomitant]
     Indication: VITAMIN SUPPLEMENTATION
  5. FISH OIL [Concomitant]
     Indication: MINERAL SUPPLEMENTATION
  6. ADVAIR [Concomitant]
     Indication: ASTHMA
  7. FLONASE [Concomitant]
     Indication: HYPERSENSITIVITY
  8. SALINE NOSE DROPS [Concomitant]
     Indication: HYPERSENSITIVITY
  9. GABAPENTIN [Concomitant]
     Indication: PAIN
  10. VITAMIN D [Concomitant]
     Indication: HYPOVITAMINOSIS
  11. METHOTREXATE [Concomitant]
     Indication: RHEUMATOID ARTHRITIS
  12. ALBUTEROL [Concomitant]
     Indication: ASTHMA
  13. FLAX SEED OIL [Concomitant]
     Indication: MINERAL SUPPLEMENTATION
  14. VICODIN [Concomitant]
     Indication: PAIN
  15. FUROSEMIDE [Concomitant]
     Indication: HYPERTENSION
  16. AMLODIPINE [Concomitant]
     Indication: HYPERTENSION
  17. GLUCOSAMINE [Concomitant]
     Indication: ARTHRALGIA
  18. HUMIRA [Suspect]
     Indication: RHEUMATOID ARTHRITIS
     Dates: start: 20080101

REACTIONS (5)
  - COUGH [None]
  - NASAL CONGESTION [None]
  - HEPATIC ENZYME INCREASED [None]
  - SINUSITIS [None]
  - MOBILITY DECREASED [None]
